FAERS Safety Report 21264823 (Version 1)
Quarter: 2022Q3

REPORT INFORMATION
  Report Type: Spontaneous
  Country: US (occurrence: None)
  Receive Date: 20220828
  Receipt Date: 20220828
  Transmission Date: 20221027
  Serious: Yes (Life-Threatening, Hospitalization)
  Sender: FDA-Public Use
  Company Number: None

PATIENT
  Age: 67 Year
  Sex: Male

DRUGS (1)
  1. CARVEDILOL [Suspect]
     Active Substance: CARVEDILOL
     Indication: Cardiac failure congestive
     Dosage: FREQUENCY : TWICE A DAY;?
     Route: 048
     Dates: start: 20210806, end: 20220518

REACTIONS (4)
  - Fall [None]
  - Musculoskeletal stiffness [None]
  - Parkinson^s disease [None]
  - Orthostatic hypotension [None]

NARRATIVE: CASE EVENT DATE: 20220518
